FAERS Safety Report 20044624 (Version 1)
Quarter: 2021Q4

REPORT INFORMATION
  Report Type: Spontaneous
  Country: US (occurrence: US)
  Receive Date: 20211108
  Receipt Date: 20211108
  Transmission Date: 20220304
  Serious: Yes (Hospitalization)
  Sender: FDA-Public Use
  Company Number: US-PFIZER INC-202101446802

PATIENT
  Age: 93 Year
  Sex: Male
  Weight: 67.59 kg

DRUGS (2)
  1. VYNDAMAX [Suspect]
     Active Substance: TAFAMIDIS
     Dosage: 61 MG, 2X/DAY
  2. BUMETANIDE [Suspect]
     Active Substance: BUMETANIDE
     Dosage: 1 MG, 2X/DAY
     Route: 048

REACTIONS (3)
  - Nasopharyngitis [Unknown]
  - Viral infection [Unknown]
  - Off label use [Unknown]
